FAERS Safety Report 6644706-2 (Version None)
Quarter: 2010Q1

REPORT INFORMATION
  Report Type: 
  Country: None (occurrence: None)
  Receive Date: 20100322
  Receipt Date: 20100312
  Transmission Date: 20100710
  Serious: Yes (Other)
  Sender: FDA-Public Use
  Company Number: US-PFIZER INC-2010032605

PATIENT
  Sex: Male
  Weight: 78.005 kg

DRUGS (3)
  1. CELEBREX [Suspect]
     Indication: INTERVERTEBRAL DISC PROTRUSION
     Dosage: UNK
     Route: 048
     Dates: start: 20100101
  2. ATENOLOL [Concomitant]
     Dosage: 100 MG, UNK
  3. LISINOPRIL [Concomitant]
     Dosage: 2.5 MG, UNK

REACTIONS (3)
  - ATRIAL FLUTTER [None]
  - HYPOAESTHESIA [None]
  - PLATELET COUNT DECREASED [None]
